FAERS Safety Report 20175786 (Version 1)
Quarter: 2021Q4

REPORT INFORMATION
  Report Type: Spontaneous
  Country: US (occurrence: None)
  Receive Date: 20211211
  Receipt Date: 20211211
  Transmission Date: 20220303
  Serious: Yes (Hospitalization)
  Sender: FDA-Public Use
  Company Number: None

PATIENT
  Age: 83 Year
  Sex: Male
  Weight: 111 kg

DRUGS (2)
  1. ERBITUX [Suspect]
     Active Substance: CETUXIMAB
     Indication: Product used for unknown indication
     Dates: end: 20211019
  2. TAXOTERE [Suspect]
     Active Substance: DOCETAXEL
     Dates: end: 20211102

REACTIONS (6)
  - Mucosal inflammation [None]
  - Dermatitis [None]
  - Hypophagia [None]
  - Weight decreased [None]
  - Dysphagia [None]
  - Oesophagitis [None]

NARRATIVE: CASE EVENT DATE: 20211122
